FAERS Safety Report 4966391-8 (Version None)
Quarter: 2006Q2

REPORT INFORMATION
  Report Type: 
  Country: None (occurrence: None)
  Receive Date: 20060407
  Receipt Date: 20051220
  Transmission Date: 20061013
  Serious: Yes (Death, Hospitalization)
  Sender: FDA-Public Use
  Company Number: US-MERCK-0512USA03312

PATIENT
  Age: 60 Year
  Sex: Male
  Weight: 127 kg

DRUGS (17)
  1. VIOXX [Suspect]
     Indication: ARTHRITIS
     Route: 048
     Dates: start: 19991230, end: 20040709
  2. ASPIRIN [Concomitant]
     Route: 065
  3. AVAPRO [Concomitant]
     Route: 065
  4. PLAVIX [Concomitant]
     Route: 065
  5. PRAVACHOL [Concomitant]
     Route: 065
  6. SYNTHROID [Concomitant]
     Route: 065
  7. SOTALOL HYDROCHLORIDE [Concomitant]
     Route: 065
  8. XANAX [Concomitant]
     Route: 065
  9. DARVOCET [Concomitant]
     Route: 065
  10. GLUCOSAMINE [Concomitant]
     Route: 065
  11. FUROSEMIDE [Concomitant]
     Route: 065
  12. COREG [Concomitant]
     Route: 065
  13. K-DUR 10 [Concomitant]
     Route: 065
  14. QUININE SULFATE [Concomitant]
     Route: 065
  15. ISOSORBIDE [Concomitant]
     Route: 065
  16. PROTONIX [Concomitant]
     Route: 065
  17. SINGULAIR [Concomitant]
     Route: 065

REACTIONS (4)
  - CARDIAC ARREST [None]
  - CEREBROVASCULAR ACCIDENT [None]
  - DEATH [None]
  - SYNCOPE [None]
